FAERS Safety Report 9060447 (Version 1)
Quarter: 2013Q1

REPORT INFORMATION
  Report Type: Spontaneous
  Country: GR (occurrence: GR)
  Receive Date: 20130212
  Receipt Date: 20130212
  Transmission Date: 20140127
  Serious: Yes (Death, Other)
  Sender: FDA-Public Use
  Company Number: GR-CELGENEUS-066-20785-13020995

PATIENT
  Sex: 0

DRUGS (1)
  1. THALIDOMIDE CELGENE [Suspect]
     Indication: MYELOFIBROSIS
     Route: 048

REACTIONS (5)
  - Venoocclusive liver disease [Fatal]
  - Prostate cancer [Fatal]
  - Malignant melanoma [Fatal]
  - Acute myeloid leukaemia [Fatal]
  - Myelofibrosis [Fatal]
